FAERS Safety Report 8164557-X (Version None)
Quarter: 2012Q1

REPORT INFORMATION
  Report Type: 
  Country: None (occurrence: None)
  Receive Date: 20120226
  Receipt Date: 20120215
  Transmission Date: 20120608
  Serious: Yes (Hospitalization, Disabling)
  Sender: FDA-Public Use
  Company Number: DE-BRISTOL-MYERS SQUIBB COMPANY-16295685

PATIENT
  Age: 52 Year
  Sex: Female

DRUGS (16)
  1. ERBITUX [Suspect]
     Indication: NON-SMALL CELL LUNG CANCER
     Dosage: LAST 17JAN12 CANCELLED ON 8CYC 13SEP11
     Route: 042
     Dates: start: 20110906
  2. PANTOPRAZOLE [Concomitant]
     Dates: start: 20110906
  3. CISPLATIN [Suspect]
     Indication: NON-SMALL CELL LUNG CANCER
     Dosage: FOR 55MINS 18.15-19.10 LAST INF ON 10NOV11.
     Route: 042
     Dates: start: 20110906
  4. LEVOFLOXACIN [Concomitant]
     Dates: start: 20110913
  5. DOCETAXEL [Suspect]
     Indication: NON-SMALL CELL LUNG CANCER
     Dosage: INTRAVENOUS INFUSION FOR 70MINS 19.15-20.25 LAST 10NOV11.
     Route: 042
     Dates: start: 20110906
  6. LEVOTHYROXINE SODIUM [Concomitant]
     Dates: start: 20110906
  7. VOLTAREN [Concomitant]
     Dates: start: 20110906
  8. PROMETHAZINE HCL [Concomitant]
     Dates: start: 20110906
  9. METOCLOPRAMIDE [Concomitant]
     Dates: start: 20110909, end: 20110909
  10. PREDNISOLONE [Concomitant]
     Dates: start: 20110906
  11. KEVATRIL [Concomitant]
     Dates: start: 20110909, end: 20110909
  12. HALOPERIDOL [Concomitant]
     Dates: start: 20110909, end: 20110909
  13. ENOXAPARIN SODIUM [Concomitant]
     Dates: start: 20110906
  14. CALCIUM CARBONATE [Concomitant]
     Dates: start: 20110906
  15. TRAMADOL HYDROCHLORIDE [Concomitant]
     Dates: start: 20110906
  16. PENTASA [Concomitant]
     Dosage: 4DF= 500MG
     Dates: start: 20110906

REACTIONS (1)
  - CHEST PAIN [None]
